FAERS Safety Report 7786362-6 (Version None)
Quarter: 2011Q3

REPORT INFORMATION
  Report Type: 
  Country: None (occurrence: None)
  Receive Date: 20110929
  Receipt Date: 20110926
  Transmission Date: 20111222
  Serious: Yes (Death)
  Sender: FDA-Public Use
  Company Number: US-JNJFOC-20110910762

PATIENT
  Sex: Male

DRUGS (1)
  1. REOPRO [Suspect]
     Indication: SURGERY
     Route: 042
     Dates: start: 20110606

REACTIONS (1)
  - DEATH [None]
